FAERS Safety Report 21767625 (Version 2)
Quarter: 2022Q4

REPORT INFORMATION
  Report Type: Report from Study
  Country: AT (occurrence: AT)
  Receive Date: 20221222
  Receipt Date: 20221227
  Transmission Date: 20230113
  Serious: Yes (Other)
  Sender: FDA-Public Use
  Company Number: AT-ABBVIE-4246041

PATIENT
  Age: 36 Year
  Sex: Female

DRUGS (1)
  1. RINVOQ [Suspect]
     Active Substance: UPADACITINIB
     Indication: Psoriatic arthropathy
     Route: 048
     Dates: start: 202105

REACTIONS (13)
  - Systemic lupus erythematosus [Recovered/Resolved]
  - Pain [Not Recovered/Not Resolved]
  - Coronavirus infection [Recovered/Resolved]
  - Visual acuity reduced [Not Recovered/Not Resolved]
  - Facial paralysis [Not Recovered/Not Resolved]
  - Weight increased [Not Recovered/Not Resolved]
  - Fatigue [Unknown]
  - Anaemia [Recovering/Resolving]
  - Post-acute COVID-19 syndrome [Recovered/Resolved]
  - Psoriatic arthropathy [Unknown]
  - Alopecia [Recovered/Resolved]
  - Nausea [Recovered/Resolved]
  - Blood cholesterol increased [Recovered/Resolved]
